FAERS Safety Report 24610455 (Version 4)
Quarter: 2025Q2

REPORT INFORMATION
  Report Type: Spontaneous
  Country: US (occurrence: US)
  Receive Date: 20241112
  Receipt Date: 20250407
  Transmission Date: 20250716
  Serious: No
  Sender: SUNOVION
  Company Number: US-MYOVANT SCIENCES GMBH-2024MYSCI0400885

PATIENT

DRUGS (2)
  1. ORGOVYX [Suspect]
     Active Substance: RELUGOLIX
     Indication: Prostate cancer
     Route: 048
  2. ORGOVYX [Suspect]
     Active Substance: RELUGOLIX

REACTIONS (13)
  - Penile size reduced [Unknown]
  - Mood swings [Unknown]
  - Abdominal fat apron [Unknown]
  - Feeling cold [Unknown]
  - Temperature intolerance [Unknown]
  - Night sweats [Unknown]
  - Blood testosterone decreased [Unknown]
  - Chills [Unknown]
  - Pyrexia [Unknown]
  - Hot flush [Unknown]
  - Fatigue [Unknown]
  - Gynaecomastia [Unknown]
  - Therapy interrupted [Unknown]
